FAERS Safety Report 25479102 (Version 1)
Quarter: 2025Q2

REPORT INFORMATION
  Report Type: Spontaneous
  Country: CH (occurrence: CH)
  Receive Date: 20250625
  Receipt Date: 20250625
  Transmission Date: 20250717
  Serious: Yes (Other)
  Sender: GUERBET
  Company Number: CH-GUERBET / GUERBET AG-CH-20250022

PATIENT
  Age: 29 Year
  Sex: Female
  Weight: 69 kg

DRUGS (1)
  1. DOTAREM [Suspect]
     Active Substance: GADOTERATE MEGLUMINE
     Indication: Magnetic resonance imaging neck
     Dosage: ADMINISTRATION RATE OF 0.47 ML/SEC
     Route: 042
     Dates: start: 20250613, end: 20250613

REACTIONS (3)
  - Dyspnoea [Recovering/Resolving]
  - Oedema mucosal [Recovering/Resolving]
  - Sneezing [Recovering/Resolving]

NARRATIVE: CASE EVENT DATE: 20250613
